FAERS Safety Report 21269396 (Version 1)
Quarter: 2022Q3

REPORT INFORMATION
  Report Type: Spontaneous
  Country: US (occurrence: None)
  Receive Date: 20220829
  Receipt Date: 20220829
  Transmission Date: 20221027
  Serious: Yes (Disabling, Other)
  Sender: FDA-Public Use
  Company Number: None

PATIENT
  Age: 43 Year
  Sex: Female
  Weight: 67.5 kg

DRUGS (14)
  1. TRAMADOL [Suspect]
     Active Substance: TRAMADOL
     Indication: Bladder spasm
     Dosage: FREQUENCY : AS NEEDED;?
     Route: 048
     Dates: start: 20220810, end: 20220820
  2. TRAMADOL [Suspect]
     Active Substance: TRAMADOL
     Indication: Pain
  3. SYNTHROID [Concomitant]
     Active Substance: LEVOTHYROXINE SODIUM
  4. OMEPRAZOLE [Concomitant]
     Active Substance: OMEPRAZOLE
  5. FOSPHYMIACIN [Concomitant]
  6. HYPERICUM PERFORATUM WHOLE [Concomitant]
     Active Substance: HYPERICUM PERFORATUM WHOLE
  7. VITAMIN D [Concomitant]
     Active Substance: VITAMIN D NOS
  8. MENO [Concomitant]
  9. RAW DESSICATED THYROID [Concomitant]
  10. EXCEDRIN [Concomitant]
     Active Substance: ACETAMINOPHEN\ASPIRIN\CAFFEINE
  11. ALEVE [Concomitant]
     Active Substance: NAPROXEN SODIUM
  12. PYRIDIUM [Concomitant]
     Active Substance: PHENAZOPYRIDINE
  13. IMODIUM AD [Concomitant]
     Active Substance: LOPERAMIDE HYDROCHLORIDE
  14. ALIGN [Concomitant]
     Active Substance: BIFIDOBACTERIUM LONGUM SUBSP. INFANTIS

REACTIONS (7)
  - Neck pain [None]
  - Pain [None]
  - Arthralgia [None]
  - Headache [None]
  - Photopsia [None]
  - Therapeutic product effect incomplete [None]
  - Product quality issue [None]

NARRATIVE: CASE EVENT DATE: 20220810
